FAERS Safety Report 4937246-X (Version None)
Quarter: 2006Q1

REPORT INFORMATION
  Report Type: 
  Country: None (occurrence: None)
  Receive Date: 20060302
  Receipt Date: 20060217
  Transmission Date: 20060701
  Serious: Yes (Death, Hospitalization)
  Sender: FDA-Public Use
  Company Number: FR_050907221

PATIENT
  Age: 57 Year
  Sex: Male
  Weight: 63 kg

DRUGS (12)
  1. GEMZAR [Suspect]
     Indication: NON-SMALL CELL LUNG CANCER
     Dosage: 1250 MG/M2, OTHER, INTRAVENOUS
     Route: 042
     Dates: start: 20050616, end: 20050801
  2. ALIMTA [Suspect]
     Indication: NON-SMALL CELL LUNG CANCER
     Dosage: 500 MG/M2, OTHER, INTRAVENOUS
     Route: 042
     Dates: start: 20050909, end: 20050909
  3. CISPLATIN [Concomitant]
  4. TAXOL (TAXOL) [Concomitant]
  5. FOLIC ACID [Concomitant]
  6. VITAMIN B12 [Concomitant]
  7. CORTICOSTEROID NOS (CORTICOSTEROID NOS) [Concomitant]
  8. NEULASTA [Concomitant]
  9. TRAMADOL HCL [Concomitant]
  10. KARDEGIC /FRA/ (ACETYLSALICYLATE LYSINE) [Concomitant]
  11. ZOCOR ^MERCK^ (SIMVATATIN) [Concomitant]
  12. PRAXILENE (NAFTIDROFURYL OXALATE) [Concomitant]

REACTIONS (5)
  - ANAEMIA [None]
  - FEBRILE NEUTROPENIA [None]
  - NEUROPATHY PERIPHERAL [None]
  - SEPTIC SHOCK [None]
  - THROMBOCYTOPENIA [None]
